FAERS Safety Report 6796177-3 (Version None)
Quarter: 2010Q2

REPORT INFORMATION
  Report Type: 
  Country: None (occurrence: None)
  Receive Date: 20100625
  Receipt Date: 20100622
  Transmission Date: 20101027
  Serious: Yes (Death)
  Sender: FDA-Public Use
  Company Number: NZ-ABBOTT-10P-118-0653241-00

PATIENT
  Age: 60 Year
  Sex: Female

DRUGS (1)
  1. SIBUTRAMINE [Suspect]
     Indication: OBESITY

REACTIONS (1)
  - PULMONARY EMBOLISM [None]
